FAERS Safety Report 20373892 (Version 1)
Quarter: 2022Q1

REPORT INFORMATION
  Report Type: Report from Study
  Country: US (occurrence: US)
  Receive Date: 20220125
  Receipt Date: 20220125
  Transmission Date: 20220423
  Serious: Yes (Hospitalization)
  Sender: FDA-Public Use
  Company Number: US-ALNYLAM PHARMACEUTICALS, INC.-ALN-2022-000125

PATIENT

DRUGS (1)
  1. GIVLAARI [Suspect]
     Active Substance: GIVOSIRAN SODIUM
     Indication: Porphyria acute
     Dosage: UNK
     Route: 065

REACTIONS (7)
  - Porphyria acute [Unknown]
  - Blister infected [Unknown]
  - Pain in extremity [Unknown]
  - Abdominal pain [Unknown]
  - Gastrointestinal disorder [Unknown]
  - Pain [Unknown]
  - Fatigue [Unknown]
